FAERS Safety Report 8072748-1 (Version None)
Quarter: 2011Q4

REPORT INFORMATION
  Report Type: 
  Country: None (occurrence: None)
  Receive Date: 20111221
  Receipt Date: 20111012
  Transmission Date: 20120403
  Serious: Yes (Other)
  Sender: FDA-Public Use
  Company Number: PHEH2011US04096

PATIENT
  Age: 72 Year
  Sex: Male
  Weight: 86 kg

DRUGS (13)
  1. METOPROLOL TARTRATE [Concomitant]
  2. PRILOSEC [Concomitant]
  3. PROGRAF [Suspect]
     Indication: PROPHYLAXIS AGAINST GRAFT VERSUS HOST DISEASE
     Dosage: 2 MG IN MORNIG, 2.5 MG IN EVENING
  4. DETROL [Concomitant]
  5. MAGNESIUM PLUS PROTEIN (MAGNESIUM PLUS PROTEIN) TABLET [Concomitant]
  6. RECLAST [Concomitant]
  7. CALCIUM WITH VITAMIN D (CALCIUM PHOSPHATE, CALCIUM SODIUM LACTATE, ERG [Concomitant]
  8. BACTRIM [Concomitant]
  9. PREDNISONE TAB [Concomitant]
  10. TEMAZEPAM [Concomitant]
  11. EXJADE [Suspect]
     Indication: IRON OVERLOAD
     Dosage: 1750 MG, QD, ORAL
     Route: 048
     Dates: start: 20110911, end: 20110930
  12. ZOCOR [Concomitant]
  13. ACYCLOVIR [Concomitant]

REACTIONS (18)
  - VOMITING [None]
  - HAEMATOCRIT DECREASED [None]
  - MEAN CELL VOLUME DECREASED [None]
  - MEAN CELL HAEMOGLOBIN INCREASED [None]
  - NEUTROPHIL COUNT INCREASED [None]
  - FATIGUE [None]
  - BLOOD CREATININE INCREASED [None]
  - RENAL FAILURE [None]
  - NAUSEA [None]
  - MONOCYTE COUNT INCREASED [None]
  - HAEMOGLOBIN DECREASED [None]
  - RED CELL DISTRIBUTION WIDTH INCREASED [None]
  - BLOOD LACTATE DEHYDROGENASE INCREASED [None]
  - DIARRHOEA [None]
  - WHITE BLOOD CELL COUNT INCREASED [None]
  - GAMMA-GLUTAMYLTRANSFERASE INCREASED [None]
  - BLOOD UREA INCREASED [None]
  - PLATELET COUNT DECREASED [None]
